FAERS Safety Report 6256401-2 (Version None)
Quarter: 2009Q2

REPORT INFORMATION
  Report Type: 
  Country: None (occurrence: None)
  Receive Date: 20090630
  Receipt Date: 20090630
  Transmission Date: 20091009
  Serious: Yes (Other)
  Sender: FDA-Public Use
  Company Number: None

PATIENT
  Age: 67 Year
  Sex: Male
  Weight: 87.5442 kg

DRUGS (1)
  1. ZOCOR [Suspect]

REACTIONS (5)
  - DIZZINESS [None]
  - INSOMNIA [None]
  - RHABDOMYOLYSIS [None]
  - VISION BLURRED [None]
  - WEIGHT DECREASED [None]
